FAERS Safety Report 8564081-6 (Version None)
Quarter: 2012Q3

REPORT INFORMATION
  Report Type: 
  Country: None (occurrence: None)
  Receive Date: 20120803
  Receipt Date: 20120725
  Transmission Date: 20120928
  Serious: Yes (Hospitalization, Other)
  Sender: FDA-Public Use
  Company Number: US-BAYER-2012-076107

PATIENT
  Age: 48 Year
  Sex: Female
  Weight: 80.998 kg

DRUGS (16)
  1. NSAID'S [Concomitant]
  2. KLONOPIN [Concomitant]
     Dosage: 2 MG HS PRN
     Route: 048
     Dates: start: 20080227, end: 20111020
  3. PROTONIX [Concomitant]
     Dosage: 40 MG,DAILY
     Route: 048
     Dates: start: 20100831
  4. YAZ [Suspect]
     Indication: CONTRACEPTION
  5. XANAX [Concomitant]
     Dosage: 1.5 MG, HS (INTERPRETED AS HOURS OF SLEEP) PRN
     Route: 048
  6. AMBIEN [Concomitant]
     Dosage: 10 MG BEDTIME PRN (INTERPRETED AS NEEDED)
     Route: 048
     Dates: start: 20090214, end: 20120116
  7. EFFEXOR XR [Concomitant]
     Dosage: 150 MG, BID
     Route: 048
     Dates: start: 20071212, end: 20110628
  8. OMEPRAZOLE [Concomitant]
     Dosage: 40 MG DAILY
  9. ZYRTEC [Concomitant]
     Dosage: 10 MG, DAILY
     Route: 048
  10. ABILIFY [Concomitant]
     Dosage: 2 MG, UNK
     Dates: start: 20100326, end: 20100628
  11. NAPROSYN [Concomitant]
     Dosage: 500 MG, UNK
     Dates: start: 20100726
  12. NEXIUM [Concomitant]
  13. CLARITIN [Concomitant]
  14. PERCOCET [Concomitant]
     Dosage: 5 MG/325MG [EVERY] 4 H/PRN (INTERPRETED AS HOURS AS NEEDED)
     Route: 048
     Dates: start: 20100826
  15. ASPIRIN [Concomitant]
     Dosage: 81 MG, UNK
     Route: 048
     Dates: start: 20100831
  16. YAZ [Suspect]
     Indication: PREMENSTRUAL SYNDROME
     Dosage: UNK
     Dates: start: 20100225, end: 20100903

REACTIONS (5)
  - DYSPNOEA [None]
  - PAIN IN EXTREMITY [None]
  - VENTRICULAR HYPERTROPHY [None]
  - PULMONARY EMBOLISM [None]
  - DEEP VEIN THROMBOSIS [None]
